FAERS Safety Report 13617124 (Version 1)
Quarter: 2017Q2

REPORT INFORMATION
  Report Type: Spontaneous
  Country: US (occurrence: US)
  Receive Date: 20170606
  Receipt Date: 20170606
  Transmission Date: 20170830
  Serious: No
  Sender: FDA-Public Use
  Company Number: US-SA-2016SA190702

PATIENT
  Age: 45 Year
  Sex: Female

DRUGS (3)
  1. SOLOSTAR [Suspect]
     Active Substance: DEVICE
     Indication: TYPE 2 DIABETES MELLITUS
     Dates: start: 2016
  2. LANTUS SOLOSTAR [Suspect]
     Active Substance: INSULIN GLARGINE
     Indication: TYPE 2 DIABETES MELLITUS
     Dosage: DOSE: 18-20 UNITS
     Route: 065
     Dates: start: 2016
  3. IRON [Concomitant]
     Active Substance: IRON

REACTIONS (4)
  - Anxiety [Unknown]
  - Device issue [Unknown]
  - Injection site urticaria [Unknown]
  - Injection site pain [Unknown]

NARRATIVE: CASE EVENT DATE: 20161011
